FAERS Safety Report 14488422 (Version 1)
Quarter: 2018Q1

REPORT INFORMATION
  Report Type: Spontaneous
  Country: GB (occurrence: GB)
  Receive Date: 20180205
  Receipt Date: 20180205
  Transmission Date: 20180509
  Serious: Yes (Death, Hospitalization)
  Sender: FDA-Public Use
  Company Number: GB-SA-2018SA025317

PATIENT
  Age: 71 Year
  Sex: Male

DRUGS (1)
  1. CLEXANE [Suspect]
     Active Substance: ENOXAPARIN SODIUM
     Indication: PULMONARY EMBOLISM
     Route: 065

REACTIONS (8)
  - Spinal cord haemorrhage [Not Recovered/Not Resolved]
  - Death [Fatal]
  - Respiratory failure [Not Recovered/Not Resolved]
  - Contraindicated drug prescribed [Unknown]
  - Drug monitoring procedure not performed [Unknown]
  - Spinal cord oedema [Not Recovered/Not Resolved]
  - Spinal cord haematoma [Not Recovered/Not Resolved]
  - Quadriplegia [Not Recovered/Not Resolved]

NARRATIVE: CASE EVENT DATE: 201704
